FAERS Safety Report 10901572 (Version 1)
Quarter: 2015Q1

REPORT INFORMATION
  Report Type: Spontaneous
  Country: None (occurrence: None)
  Receive Date: 20150303
  Receipt Date: 20150303
  Transmission Date: 20150721
  Serious: No
  Sender: FDA-Public Use
  Company Number: None

PATIENT
  Age: 38 Year
  Sex: Female
  Weight: 65.77 kg

DRUGS (1)
  1. CLINDAMYCIN [Suspect]
     Active Substance: CLINDAMYCIN\CLINDAMYCIN PHOSPHATE
     Indication: TOOTH ABSCESS
     Dosage: 1 PILL  THREE TIMES DAILY   TAKEN BY MOUTH
     Route: 048
     Dates: start: 20150227, end: 20150302

REACTIONS (7)
  - Diarrhoea [None]
  - Oropharyngeal pain [None]
  - Chills [None]
  - Fatigue [None]
  - Influenza like illness [None]
  - Middle insomnia [None]
  - Throat lesion [None]

NARRATIVE: CASE EVENT DATE: 20150227
